FAERS Safety Report 7421113-6 (Version None)
Quarter: 2011Q2

REPORT INFORMATION
  Report Type: 
  Country: None (occurrence: None)
  Receive Date: 20110418
  Receipt Date: 20110406
  Transmission Date: 20111010
  Serious: Yes (Hospitalization, Other)
  Sender: FDA-Public Use
  Company Number: IT-ELI_LILLY_AND_COMPANY-IT201102002977

PATIENT
  Age: 70 Year
  Sex: Male

DRUGS (9)
  1. DOBETIN [Concomitant]
  2. LASIX [Concomitant]
     Dosage: 25 MG, 2/D
  3. PURSENNID [Concomitant]
     Dosage: UNK, 2/D
  4. TARCEVA [Concomitant]
     Dosage: 150 MG, UNK
     Dates: start: 20101018
  5. GEMZAR [Suspect]
     Dosage: 1000 MG/MQ GG 1-8 Q21, UNK
     Dates: start: 20100601
  6. CARBOPLATIN [Concomitant]
     Indication: NON-SMALL CELL LUNG CANCER
     Dosage: UNK, Q 21
     Dates: start: 20101126
  7. FOLIC ACID [Concomitant]
     Dosage: UNK, DAILY (1/D)
  8. DELTACORTENE [Concomitant]
     Dosage: 25 MG, DAILY (1/D)
  9. ALIMTA [Suspect]
     Indication: NON-SMALL CELL LUNG CANCER

REACTIONS (3)
  - PANCYTOPENIA [None]
  - NEOPLASM MALIGNANT [None]
  - TRANSIENT ISCHAEMIC ATTACK [None]
